FAERS Safety Report 5709082-8 (Version None)
Quarter: 2008Q2

REPORT INFORMATION
  Report Type: 
  Country: None (occurrence: None)
  Receive Date: 20080418
  Receipt Date: 20080408
  Transmission Date: 20081010
  Serious: Yes (Death)
  Sender: FDA-Public Use
  Company Number: TN-JNJFOC-20080400842

PATIENT
  Sex: Male

DRUGS (4)
  1. LEVOFLOXACIN [Suspect]
     Indication: BRONCHITIS
     Route: 065
  2. SALMETEROL [Concomitant]
     Route: 065
  3. THEOPHILLINE [Concomitant]
     Route: 065
  4. DEXAMETHASONE TAB [Concomitant]
     Route: 065

REACTIONS (1)
  - HYPOXIA [None]
